FAERS Safety Report 25778631 (Version 3)
Quarter: 2025Q4

REPORT INFORMATION
  Report Type: Spontaneous
  Country: EU (occurrence: EU)
  Receive Date: 20250909
  Receipt Date: 20251029
  Transmission Date: 20260118
  Serious: Yes (Other)
  Sender: MERCK SHARP & DOHME LLC
  Company Number: None

PATIENT
  Age: 62 Year
  Sex: Female
  Weight: 65 kg

DRUGS (8)
  1. KEYTRUDA [Suspect]
     Active Substance: PEMBROLIZUMAB
     Indication: Breast cancer stage III
     Dosage: 200MG IN 100ML OF 0.9% NACL EVERY 3 WEEKS
     Route: 042
     Dates: start: 20240531, end: 20241105
  2. DEXAMETHASONE [Concomitant]
     Active Substance: DEXAMETHASONE
     Indication: Chemotherapy side effect prophylaxis
     Dosage: 20MG IN INFUSION
     Route: 042
     Dates: start: 20240531
  3. HYDROCORTISONE SODIUM SUCCINATE [Concomitant]
     Active Substance: HYDROCORTISONE SODIUM SUCCINATE
     Indication: Chemotherapy side effect prophylaxis
     Dosage: 200MG IN 100ML OF NACL 0.9%
     Route: 042
     Dates: start: 20240531
  4. TRIMETON [Concomitant]
     Active Substance: CHLORPHENIRAMINE MALEATE
     Indication: Chemotherapy side effect prophylaxis
     Dosage: 10MG IN 100ML OF NACL 0.9%
     Route: 042
     Dates: start: 20240531
  5. CARBOPLATIN [Suspect]
     Active Substance: CARBOPLATIN
     Indication: Breast cancer stage III
     Dosage: 15MG/AUC IN 250ML OF 5% GLUCOSE EVERY WEEK
     Route: 042
     Dates: start: 20240531, end: 20240719
  6. PACLITAXEL [Suspect]
     Active Substance: PACLITAXEL
     Indication: Breast cancer stage III
     Dosage: 80MG/M? IN 250ML OF NACL 0.9% EVERY WEEK
     Route: 042
     Dates: start: 20240531, end: 20240719
  7. LEVOTHYROXINE SODIUM [Concomitant]
     Active Substance: LEVOTHYROXINE SODIUM
     Indication: Thyroiditis
     Dosage: 25MCG X 1TIME/DAY
     Route: 048
  8. ONDANSETRON [Concomitant]
     Active Substance: ONDANSETRON
     Indication: Prophylaxis of nausea and vomiting
     Dosage: 8MG IN 100ML OF 0.9% NACL
     Route: 042
     Dates: start: 20240531

REACTIONS (3)
  - Neutropenia [Recovered/Resolved]
  - Leukopenia [Recovered/Resolved]
  - Pyrexia [Recovered/Resolved]

NARRATIVE: CASE EVENT DATE: 20240712
